FAERS Safety Report 7262904-4 (Version None)
Quarter: 2011Q1

REPORT INFORMATION
  Report Type: 
  Country: None (occurrence: None)
  Receive Date: 20110130
  Receipt Date: 20100928
  Transmission Date: 20110831
  Serious: No
  Sender: FDA-Public Use
  Company Number: US-ABBOTT-10P-163-0673992-00

PATIENT
  Age: 54 Year
  Sex: Male

DRUGS (3)
  1. AZATHIOPRINE [Concomitant]
     Indication: IMMUNE SYSTEM DISORDER
  2. HUMIRA [Suspect]
     Indication: CROHN'S DISEASE
     Dates: start: 20100701
  3. MULTI-VITAMIN [Concomitant]
     Indication: PRODUCT USED FOR UNKNOWN INDICATION

REACTIONS (3)
  - ASTHENIA [None]
  - MUSCULOSKELETAL PAIN [None]
  - ARTHRALGIA [None]
